FAERS Safety Report 25557988 (Version 1)
Quarter: 2025Q3

REPORT INFORMATION
  Report Type: Spontaneous
  Country: CN (occurrence: CN)
  Receive Date: 20250715
  Receipt Date: 20250715
  Transmission Date: 20251020
  Serious: Yes (Hospitalization, Other)
  Sender: NOVARTIS
  Company Number: CN-002147023-NVSC2025CN110736

PATIENT
  Age: 68 Year
  Sex: Male

DRUGS (4)
  1. OXCARBAZEPINE [Suspect]
     Active Substance: OXCARBAZEPINE
     Indication: Epilepsy
     Dosage: 0.600 G, TID
     Route: 048
     Dates: start: 20250624, end: 20250629
  2. OXCARBAZEPINE [Suspect]
     Active Substance: OXCARBAZEPINE
     Dosage: 1 DOSAGE FORM, QMO
     Route: 048
  3. SACUBITRIL\VALSARTAN [Concomitant]
     Active Substance: SACUBITRIL\VALSARTAN
     Indication: Blood pressure increased
     Dosage: 300.000 MG, QD
     Route: 048
     Dates: start: 20250624, end: 20250629
  4. NIFEDIPINE [Concomitant]
     Active Substance: NIFEDIPINE
     Indication: Blood pressure increased
     Dosage: 30.000 MG, BID
     Route: 048
     Dates: start: 20250624, end: 20250629

REACTIONS (9)
  - Hyponatraemia [Unknown]
  - Electrolyte imbalance [Unknown]
  - Hypokalaemia [Unknown]
  - Inappropriate antidiuretic hormone secretion [Unknown]
  - Cortisol abnormal [Unknown]
  - Tri-iodothyronine free abnormal [Unknown]
  - Chest discomfort [Unknown]
  - Asthenia [Unknown]
  - Tachypnoea [Unknown]

NARRATIVE: CASE EVENT DATE: 20250624
